FAERS Safety Report 6335628-5 (Version None)
Quarter: 2009Q3

REPORT INFORMATION
  Report Type: 
  Country: None (occurrence: None)
  Receive Date: 20090831
  Receipt Date: 20090819
  Transmission Date: 20100115
  Serious: Yes (Other)
  Sender: FDA-Public Use
  Company Number: JP-PFIZER INC-2009258158

PATIENT
  Age: 34 Year

DRUGS (3)
  1. GABAPENTIN [Suspect]
     Indication: COMPLEX PARTIAL SEIZURES
     Dosage: UNK
     Route: 048
  2. CARBAMAZEPINE [Concomitant]
     Indication: COMPLEX PARTIAL SEIZURES
     Dosage: UNK
     Route: 048
  3. VALPROIC ACID [Concomitant]
     Indication: COMPLEX PARTIAL SEIZURES
     Dosage: UNK

REACTIONS (1)
  - STATUS EPILEPTICUS [None]
